FAERS Safety Report 9171725 (Version 2)
Quarter: 2013Q3

REPORT INFORMATION
  Report Type: Spontaneous
  Country: US (occurrence: None)
  Receive Date: 20130314
  Receipt Date: 20130806
  Transmission Date: 20140515
  Serious: Yes (Hospitalization)
  Sender: FDA-Public Use
  Company Number: 2013P1002950

PATIENT
  Age: 69 Year
  Sex: Female
  Weight: 76 kg

DRUGS (2)
  1. INFUMORPH [Suspect]
     Indication: PAIN
  2. INFUMORPH [Suspect]
     Indication: POST LAMINECTOMY SYNDROME

REACTIONS (4)
  - Sedation [None]
  - Heart rate decreased [None]
  - Blood pressure decreased [None]
  - Mental status changes [None]
